FAERS Safety Report 7411230-9 (Version None)
Quarter: 2011Q2

REPORT INFORMATION
  Report Type: 
  Country: None (occurrence: None)
  Receive Date: 20110413
  Receipt Date: 20100409
  Transmission Date: 20111010
  Serious: No
  Sender: FDA-Public Use
  Company Number: US-BRISTOL-MYERS SQUIBB COMPANY-15060627

PATIENT
  Age: 61 Year
  Sex: Female

DRUGS (2)
  1. ERBITUX [Suspect]
     Indication: COLON CANCER METASTATIC
     Route: 042
  2. CAMPTOSAR [Concomitant]
     Indication: COLON CANCER METASTATIC
     Dosage: 200MG/WK
     Route: 042
     Dates: start: 20091201

REACTIONS (1)
  - ONYCHOMADESIS [None]
